FAERS Safety Report 12879535 (Version 1)
Quarter: 2016Q4

REPORT INFORMATION
  Report Type: Other
  Country: JP (occurrence: JP)
  Receive Date: 20161025
  Receipt Date: 20161025
  Transmission Date: 20170207
  Serious: Yes (Hospitalization)
  Sender: FDA-Public Use
  Company Number: JP-LUPIN PHARMACEUTICALS INC.-2016-01250

PATIENT
  Age: 23 Year
  Sex: Female
  Weight: 45.7 kg

DRUGS (1)
  1. CEFTRIAXONE. [Suspect]
     Active Substance: CEFTRIAXONE
     Indication: DIVERTICULITIS
     Dosage: 2.0 G
     Route: 065

REACTIONS (1)
  - Cholelithiasis [Recovered/Resolved]
